FAERS Safety Report 20199438 (Version 1)
Quarter: 2021Q4

REPORT INFORMATION
  Report Type: Spontaneous
  Country: US (occurrence: US)
  Receive Date: 20211217
  Receipt Date: 20211217
  Transmission Date: 20220303
  Serious: No
  Sender: FDA-Public Use
  Company Number: US-PACIRA-2021000173

PATIENT
  Sex: Male
  Weight: 150 kg

DRUGS (4)
  1. EXPAREL [Suspect]
     Active Substance: BUPIVACAINE
     Dosage: 20CC OF EXPAREL ALONG WITH 20CC OF QUARTER PERCENT BUPIVACAINE VIA A TAP BLOCK
     Route: 065
  2. EXPAREL [Suspect]
     Active Substance: BUPIVACAINE
     Dosage: 20CC OF EXPAREL + 20CC HALF PERCENT BUPIVACAINE
     Route: 065
  3. BUPIVACAINE [Suspect]
     Active Substance: BUPIVACAINE
     Dosage: 20CC OF 0.25% BUPIVACAINE WITH 20CC OF EXPAREL VIA A TAP BLOCK
     Route: 065
  4. BUPIVACAINE [Suspect]
     Active Substance: BUPIVACAINE
     Dosage: INFILTRATION OF 20CC 0.5% BUPIVACAINE WITH 20CC OF EXPAREL
     Route: 065

REACTIONS (2)
  - Overdose [Unknown]
  - No adverse event [Unknown]
